FAERS Safety Report 13390182 (Version 1)
Quarter: 2017Q1

REPORT INFORMATION
  Report Type: Spontaneous
  Country: US (occurrence: US)
  Receive Date: 20170331
  Receipt Date: 20170331
  Transmission Date: 20170429
  Serious: Yes (Hospitalization)
  Sender: FDA-Public Use
  Company Number: US-ASTRAZENECA-2017SE32768

PATIENT
  Age: 26786 Day
  Sex: Female
  Weight: 106.6 kg

DRUGS (2)
  1. ARIMIDEX [Suspect]
     Active Substance: ANASTROZOLE
     Indication: BREAST CANCER FEMALE
     Route: 048
  2. ARIMIDEX [Suspect]
     Active Substance: ANASTROZOLE
     Indication: BREAST CANCER FEMALE
     Route: 048
     Dates: start: 2003, end: 2008

REACTIONS (10)
  - Intercepted drug administration error [Unknown]
  - Lymphoedema [Not Recovered/Not Resolved]
  - Product use issue [None]
  - Generalised oedema [Unknown]
  - Adverse drug reaction [None]
  - Pulmonary hypertension [Unknown]
  - Tricuspid valve incompetence [Unknown]
  - Mental impairment [Unknown]
  - Lethargy [Unknown]
  - Peripheral swelling [Unknown]

NARRATIVE: CASE EVENT DATE: 20170322
